FAERS Safety Report 8223506-6 (Version None)
Quarter: 2012Q1

REPORT INFORMATION
  Report Type: 
  Country: None (occurrence: None)
  Receive Date: 20120321
  Receipt Date: 20120314
  Transmission Date: 20120608
  Serious: No
  Sender: FDA-Public Use
  Company Number: US-PFIZER INC-2012068679

PATIENT

DRUGS (9)
  1. PRISTIQ [Suspect]
     Dosage: UNK
  2. XANAX [Suspect]
     Dosage: UNK
  3. TRAZODONE HYDROCHLORIDE [Suspect]
     Dosage: UNK
  4. CELEXA [Suspect]
     Dosage: UNK
  5. DEMEROL [Suspect]
     Dosage: UNK
  6. DEPAKOTE [Suspect]
     Dosage: UNK
  7. VICODIN [Suspect]
     Dosage: UNK
  8. SAVELLA [Suspect]
     Dosage: UNK
  9. OXYCONTIN [Suspect]
     Dosage: UNK

REACTIONS (1)
  - DRUG HYPERSENSITIVITY [None]
